FAERS Safety Report 9578330 (Version 1)
Quarter: 2013Q4

REPORT INFORMATION
  Report Type: Spontaneous
  Country: US (occurrence: US)
  Receive Date: 20131001
  Receipt Date: 20131001
  Transmission Date: 20140711
  Serious: No
  Sender: FDA-Public Use
  Company Number: US-AMGEN-USASP2013012494

PATIENT
  Sex: Female
  Weight: 61.22 kg

DRUGS (4)
  1. ENBREL [Suspect]
     Indication: RHEUMATOID ARTHRITIS
     Dosage: 50 MG, UNK
     Route: 058
     Dates: start: 20020101, end: 2007
  2. DUREZOL [Concomitant]
     Dosage: EMU
  3. HUMIRA [Concomitant]
     Dosage: UNK
  4. ORTHO TRI-CYCLEN [Concomitant]
     Dosage: UNK

REACTIONS (1)
  - Drug effect decreased [Recovered/Resolved]
